FAERS Safety Report 8054021-0 (Version None)
Quarter: 2011Q4

REPORT INFORMATION
  Report Type: 
  Country: None (occurrence: None)
  Receive Date: 20111213
  Receipt Date: 20110914
  Transmission Date: 20120403
  Serious: No
  Sender: FDA-Public Use
  Company Number: 2011SP043552

PATIENT
  Age: 42 Year
  Sex: Female

DRUGS (3)
  1. LAMOTRIGINE [Concomitant]
  2. SEROQUEL [Concomitant]
  3. SAPHRIS [Suspect]
     Indication: BIPOLAR II DISORDER
     Dosage: 10 MG;BID;SL
     Route: 060
     Dates: start: 20110726, end: 20110728

REACTIONS (1)
  - RASH PRURITIC [None]
